FAERS Safety Report 13703098 (Version 1)
Quarter: 2017Q2

REPORT INFORMATION
  Report Type: Spontaneous
  Country: ES (occurrence: ES)
  Receive Date: 20170629
  Receipt Date: 20170629
  Transmission Date: 20170830
  Serious: Yes (Hospitalization, Other)
  Sender: FDA-Public Use
  Company Number: ES-BAYER-2017-121425

PATIENT
  Age: 38 Year
  Sex: Female

DRUGS (2)
  1. LEVONORGESTREL. [Suspect]
     Active Substance: LEVONORGESTREL
     Indication: ENDOMETRIOSIS
  2. LEVONORGESTREL. [Suspect]
     Active Substance: LEVONORGESTREL
     Indication: UTERINE HAEMORRHAGE
     Dosage: UNK, CONT
     Route: 015

REACTIONS (7)
  - Abdominal pain lower [Recovered/Resolved]
  - Uterine cervical pain [Recovered/Resolved]
  - Endometriosis [None]
  - C-reactive protein increased [Recovered/Resolved]
  - Pelvic inflammatory disease [Recovered/Resolved]
  - Hydrosalpinx [Unknown]
  - White blood cell count increased [Recovered/Resolved]
